FAERS Safety Report 12004548 (Version 2)
Quarter: 2016Q1

REPORT INFORMATION
  Report Type: Spontaneous
  Country: FI (occurrence: FI)
  Receive Date: 20160204
  Receipt Date: 20160306
  Transmission Date: 20160526
  Serious: Yes (Other)
  Sender: FDA-Public Use
  Company Number: FI-TEVA-630175ISR

PATIENT
  Age: 54 Year
  Sex: Female

DRUGS (2)
  1. DOXIMYCIN 100 MG [Suspect]
     Active Substance: DOXYCYCLINE
     Indication: BORRELIA INFECTION
     Dosage: 1 MONTH
     Route: 048
     Dates: start: 201512
  2. DOXIMED 100 MG [Suspect]
     Active Substance: DOXYCYCLINE
     Indication: BORRELIA INFECTION
     Dosage: THERAPY DURATION 3,5 WEEKS
     Route: 048
     Dates: start: 201410

REACTIONS (8)
  - Photosensitivity reaction [Recovered/Resolved]
  - Diarrhoea [Recovered/Resolved]
  - Nausea [Recovered/Resolved]
  - Photoonycholysis [Recovered/Resolved]
  - Paraesthesia [Unknown]
  - Intracranial pressure increased [Not Recovered/Not Resolved]
  - Cough [Unknown]
  - Paraesthesia [Recovered/Resolved]
